FAERS Safety Report 9097057 (Version 1)
Quarter: 2013Q1

REPORT INFORMATION
  Report Type: Spontaneous
  Country: JP (occurrence: None)
  Receive Date: 20130123
  Receipt Date: 20130123
  Transmission Date: 20140127
  Serious: Yes (Other)
  Sender: FDA-Public Use
  Company Number: 2013-000179

PATIENT
  Age: 71 Year
  Sex: Female

DRUGS (1)
  1. BENET (RISEDRONATE SODIUM) TABLET [Suspect]
     Dates: start: 200712, end: 201101

REACTIONS (2)
  - Osteomyelitis [None]
  - Osteonecrosis of jaw [None]
